FAERS Safety Report 13179034 (Version 3)
Quarter: 2019Q1

REPORT INFORMATION
  Report Type: Spontaneous
  Country: US (occurrence: US)
  Receive Date: 20170202
  Receipt Date: 20190115
  Transmission Date: 20190417
  Serious: Yes (Other)
  Sender: FDA-Public Use
  Company Number: US-JNJFOC-20170121279

PATIENT
  Age: 50 Year
  Sex: Male
  Weight: 81.65 kg

DRUGS (4)
  1. ADVIL [Suspect]
     Active Substance: IBUPROFEN
     Indication: PAIN
     Dosage: 200 MG CAPLET, 2 EVERY 4-6 HOURS
     Route: 048
     Dates: start: 2016
  2. ADVIL [Suspect]
     Active Substance: IBUPROFEN
     Indication: PAIN
     Dosage: 200 MG CAPLET, 2 EVERY 4-6 HOURS
     Route: 048
     Dates: start: 201609
  3. TYLENOL [Suspect]
     Active Substance: ACETAMINOPHEN
     Indication: PAIN
     Dosage: 500 MG, 2 TABLET EVERY 4-6 HOURS
     Route: 048
     Dates: start: 201609
  4. TYLENOL [Suspect]
     Active Substance: ACETAMINOPHEN
     Indication: PAIN
     Dosage: 500 MG, 2 TABLET EVERY 4-6 HOURS
     Route: 048
     Dates: start: 2016

REACTIONS (2)
  - Haematochezia [Not Recovered/Not Resolved]
  - Fatigue [Not Recovered/Not Resolved]

NARRATIVE: CASE EVENT DATE: 201609
